FAERS Safety Report 12543228 (Version 1)
Quarter: 2016Q3

REPORT INFORMATION
  Report Type: Spontaneous
  Country: US (occurrence: US)
  Receive Date: 20160711
  Receipt Date: 20160711
  Transmission Date: 20161109
  Serious: No
  Sender: FDA-Public Use
  Company Number: US-009507513-1606USA011272

PATIENT
  Sex: Female

DRUGS (1)
  1. SINEMET CR [Suspect]
     Active Substance: CARBIDOPA\LEVODOPA
     Route: 048

REACTIONS (4)
  - Movement disorder [Unknown]
  - Intentional product misuse [Unknown]
  - Drug effect increased [Unknown]
  - Psychomotor hyperactivity [Unknown]
